FAERS Safety Report 6860033-2 (Version None)
Quarter: 2010Q3

REPORT INFORMATION
  Report Type: 
  Country: None (occurrence: None)
  Receive Date: 20100719
  Receipt Date: 20100719
  Transmission Date: 20110219
  Serious: Yes (Hospitalization, Disabling, Other)
  Sender: FDA-Public Use
  Company Number: None

PATIENT
  Sex: Female
  Weight: 63.5036 kg

DRUGS (1)
  1. MAXZIDE [Suspect]
     Indication: FLUID RETENTION
     Dosage: (MID 1970'S - 2009)

REACTIONS (8)
  - ACTIVITIES OF DAILY LIVING IMPAIRED [None]
  - BLINDNESS [None]
  - DIABETES MELLITUS [None]
  - GAIT DISTURBANCE [None]
  - IMPAIRED HEALING [None]
  - LEG AMPUTATION [None]
  - MALAISE [None]
  - UNEVALUABLE EVENT [None]
